FAERS Safety Report 9918864 (Version 1)
Quarter: 2014Q1

REPORT INFORMATION
  Report Type: Spontaneous
  Country: FR (occurrence: FR)
  Receive Date: 20140224
  Receipt Date: 20140224
  Transmission Date: 20141002
  Serious: Yes (Hospitalization)
  Sender: FDA-Public Use
  Company Number: FR-BAYER-2014-026529

PATIENT
  Age: 72 Year
  Sex: Female

DRUGS (2)
  1. REGORAFENIB [Suspect]
     Dosage: UNK
     Route: 048
     Dates: start: 201309
  2. REGORAFENIB [Suspect]

REACTIONS (2)
  - Skin ulcer [Recovering/Resolving]
  - Impaired healing [Recovering/Resolving]
